FAERS Safety Report 8023105-5 (Version None)
Quarter: 2012Q1

REPORT INFORMATION
  Report Type: 
  Country: None (occurrence: None)
  Receive Date: 20120104
  Receipt Date: 20111227
  Transmission Date: 20120608
  Serious: Yes (Hospitalization)
  Sender: FDA-Public Use
  Company Number: CHPA2011US018655

PATIENT
  Age: 22 Year
  Sex: Female

DRUGS (1)
  1. ACETAMINOPHEN [Suspect]
     Dosage: 15 G, UNK
     Route: 048

REACTIONS (15)
  - MENTAL STATUS CHANGES [None]
  - UNRESPONSIVE TO STIMULI [None]
  - COMA [None]
  - ACUTE HEPATIC FAILURE [None]
  - HYPERAMMONAEMIA [None]
  - OVERDOSE [None]
  - CONFUSIONAL STATE [None]
  - AGITATION [None]
  - COMMUNICATION DISORDER [None]
  - ENCEPHALOPATHY [None]
  - BRAIN OEDEMA [None]
  - NAUSEA [None]
  - IRRITABILITY [None]
  - INTRACRANIAL PRESSURE INCREASED [None]
  - DECEREBRATION [None]
